FAERS Safety Report 14961237 (Version 1)
Quarter: 2018Q2

REPORT INFORMATION
  Report Type: Spontaneous
  Country: UA (occurrence: UA)
  Receive Date: 20180601
  Receipt Date: 20180601
  Transmission Date: 20180711
  Serious: Yes (Death, Other)
  Sender: FDA-Public Use
  Company Number: UA-ASTRAZENECA-2018SE69738

PATIENT
  Age: 16531 Day
  Sex: Male

DRUGS (3)
  1. BRILINTA [Suspect]
     Active Substance: TICAGRELOR
     Dosage: 90
     Route: 048
     Dates: start: 20180515, end: 20180521
  2. ASPIRIN. [Concomitant]
     Active Substance: ASPIRIN
  3. FRAXIPARIN [Concomitant]
     Active Substance: NADROPARIN CALCIUM

REACTIONS (5)
  - Cardiac fibrillation [Unknown]
  - Vascular stent thrombosis [Unknown]
  - Acute myocardial infarction [Unknown]
  - Hypotension [Unknown]
  - Death [Fatal]

NARRATIVE: CASE EVENT DATE: 20180521
